FAERS Safety Report 6980342-6 (Version None)
Quarter: 2010Q3

REPORT INFORMATION
  Report Type: 
  Country: None (occurrence: None)
  Receive Date: 20100909
  Receipt Date: 20100824
  Transmission Date: 20110219
  Serious: Yes (Hospitalization)
  Sender: FDA-Public Use
  Company Number: 2010AP001836

PATIENT
  Age: 90 Year
  Sex: Female

DRUGS (1)
  1. RAMIPRIL [Suspect]
     Dosage: 7.5 MG; PO
     Route: 048

REACTIONS (2)
  - HEPATIC FUNCTION ABNORMAL [None]
  - LIVER FUNCTION TEST ABNORMAL [None]
